FAERS Safety Report 9792207 (Version 7)
Quarter: 2014Q3

REPORT INFORMATION
  Report Type: Spontaneous
  Country: US (occurrence: US)
  Receive Date: 20140102
  Receipt Date: 20140923
  Transmission Date: 20150326
  Serious: Yes (Hospitalization, Other)
  Sender: FDA-Public Use
  Company Number: US-009507513-1312USA011689

PATIENT
  Sex: Female
  Weight: 81.63 kg

DRUGS (5)
  1. ALENDRONATE SODIUM. [Suspect]
     Active Substance: ALENDRONATE SODIUM
     Indication: OSTEOPOROSIS
     Dosage: 70 MG, UNK
     Dates: start: 2001, end: 2011
  2. HORMONES (UNSPECIFIED) [Concomitant]
     Active Substance: UNSPECIFIED INGREDIENT
     Dosage: UNK
     Dates: start: 1992, end: 2000
  3. ALENDRONATE SODIUM. [Suspect]
     Active Substance: ALENDRONATE SODIUM
     Indication: OSTEOPENIA
  4. FOSAMAX [Suspect]
     Active Substance: ALENDRONATE SODIUM
     Indication: OSTEOPOROSIS
     Dosage: 10 MG, QD
     Route: 048
     Dates: start: 2000, end: 2001
  5. FOSAMAX [Suspect]
     Active Substance: ALENDRONATE SODIUM
     Indication: OSTEOPENIA
     Dosage: 70 MG, QW
     Route: 048
     Dates: start: 20010925, end: 2010

REACTIONS (31)
  - Intramedullary rod insertion [Unknown]
  - Lumbar spinal stenosis [Unknown]
  - Bone scan abnormal [Unknown]
  - Arthralgia [Unknown]
  - Femur fracture [Unknown]
  - Intramedullary rod insertion [Unknown]
  - Blood pressure increased [Unknown]
  - Hepatic enzyme increased [Unknown]
  - Cyst [Unknown]
  - Foot fracture [Unknown]
  - Foot operation [Unknown]
  - Gallbladder disorder [Unknown]
  - Hyperglycaemia [Recovering/Resolving]
  - Neuropathy peripheral [Unknown]
  - Femur fracture [Unknown]
  - Back pain [Unknown]
  - Metatarsalgia [Unknown]
  - Low turnover osteopathy [Unknown]
  - Femur fracture [Unknown]
  - Peroneal nerve palsy [Recovering/Resolving]
  - Hypercholesterolaemia [Unknown]
  - Primary hypothyroidism [Unknown]
  - Intervertebral disc protrusion [Unknown]
  - Hiatus hernia [Unknown]
  - Hypocalcaemia [Unknown]
  - Insomnia [Unknown]
  - Osteoarthritis [Unknown]
  - Back pain [Unknown]
  - Foot fracture [Recovering/Resolving]
  - Limb injury [Unknown]
  - Arthropathy [Unknown]

NARRATIVE: CASE EVENT DATE: 20001001
